FAERS Safety Report 4417512-7 (Version None)
Quarter: 2004Q3

REPORT INFORMATION
  Report Type: 
  Country: None (occurrence: None)
  Receive Date: 20040804
  Receipt Date: 20040712
  Transmission Date: 20050211
  Serious: Yes (Hospitalization)
  Sender: FDA-Public Use
  Company Number: HP20041134

PATIENT
  Sex: Male

DRUGS (20)
  1. PANAFIL OINTMENT (HEALTHPOINT, LTD.) [Suspect]
     Indication: WOUND
     Dosage: 1X DAILY - 060
     Dates: start: 20040616
  2. REGRANEX [Suspect]
     Indication: WOUND
     Dosage: - 060
     Dates: start: 20040616
  3. NITRO TAB [Concomitant]
  4. PLAVIX [Concomitant]
  5. PLETAL [Concomitant]
  6. ALLOPURINOL [Concomitant]
  7. AMIODARONE HCL [Concomitant]
  8. ASPIRIN [Concomitant]
  9. ZOCOR [Concomitant]
  10. FOLIC ACID [Concomitant]
  11. METOPROLOL [Concomitant]
  12. PREDNISONE [Concomitant]
  13. PREVACID [Concomitant]
  14. HUMULIN N [Concomitant]
  15. ONE TOUCH TEST STRIPS [Concomitant]
  16. ALCOHOL SWABS [Concomitant]
  17. LIFE SCAN FINE POINT LANCETS [Concomitant]
  18. B-D ULTRA FINE INSULIN SYRINGE [Concomitant]
  19. TRUSOPT [Concomitant]
  20. COSOPT [Concomitant]

REACTIONS (2)
  - COMA [None]
  - SEPSIS [None]
